FAERS Safety Report 8382011-7 (Version None)
Quarter: 2012Q1

REPORT INFORMATION
  Report Type: 
  Country: None (occurrence: None)
  Receive Date: 20120323
  Receipt Date: 20110513
  Transmission Date: 20120608
  Serious: Yes (Other)
  Sender: FDA-Public Use
  Company Number: 163-21880-11051920

PATIENT
  Age: 77 Year
  Sex: Female
  Weight: 76.6579 kg

DRUGS (5)
  1. REVLIMID [Suspect]
     Indication: MULTIPLE MYELOMA
     Dosage: 10 MG, 1 IN1 D, PO ; 15 MG, PO ; 15 MG, /DAY X 14 DAYS, PO
     Route: 048
     Dates: start: 20090301
  2. REVLIMID [Suspect]
     Indication: MULTIPLE MYELOMA
     Dosage: 10 MG, 1 IN1 D, PO ; 15 MG, PO ; 15 MG, /DAY X 14 DAYS, PO
     Route: 048
     Dates: start: 20110401, end: 20110415
  3. REVLIMID [Suspect]
     Indication: MULTIPLE MYELOMA
     Dosage: 10 MG, 1 IN1 D, PO ; 15 MG, PO ; 15 MG, /DAY X 14 DAYS, PO
     Route: 048
     Dates: start: 20081201
  4. DEXAMETHASONE [Concomitant]
  5. VELCADE [Concomitant]

REACTIONS (2)
  - THROMBOCYTOPENIA [None]
  - NEUROPATHY PERIPHERAL [None]
